FAERS Safety Report 25996482 (Version 1)
Quarter: 2025Q4

REPORT INFORMATION
  Report Type: Spontaneous
  Country: MX (occurrence: MX)
  Receive Date: 20251104
  Receipt Date: 20251104
  Transmission Date: 20260118
  Serious: Yes (Death)
  Sender: BIOMARIN
  Company Number: MX-SA-2025SA321150

PATIENT
  Sex: Male

DRUGS (1)
  1. LARONIDASE [Suspect]
     Active Substance: LARONIDASE
     Indication: Mucopolysaccharidosis I
     Dosage: UNK UNK, QW

REACTIONS (1)
  - Foot fracture [Fatal]
